FAERS Safety Report 7182920-0 (Version None)
Quarter: 2010Q4

REPORT INFORMATION
  Report Type: 
  Country: None (occurrence: None)
  Receive Date: 20101209
  Receipt Date: 20101124
  Transmission Date: 20110411
  Serious: Yes (Other)
  Sender: FDA-Public Use
  Company Number: CA-1184245

PATIENT
  Age: 65 Year
  Sex: Female

DRUGS (3)
  1. TOBRADEX [Suspect]
     Dosage: 2-3 TIMES DAILY OPHTHALMIC
     Route: 047
     Dates: start: 20101027, end: 20101102
  2. CLONAZEPAM [Concomitant]
  3. CLOMIPRAMINE HCL [Concomitant]

REACTIONS (1)
  - VISUAL ACUITY REDUCED [None]
